FAERS Safety Report 18762633 (Version 1)
Quarter: 2021Q1

REPORT INFORMATION
  Report Type: Spontaneous
  Country: IT (occurrence: IT)
  Receive Date: 20210120
  Receipt Date: 20210120
  Transmission Date: 20210419
  Serious: Yes (Hospitalization)
  Sender: FDA-Public Use
  Company Number: IT-PFIZER INC-2021026846

PATIENT
  Age: 56 Year
  Sex: Female

DRUGS (4)
  1. MINIAS [Suspect]
     Active Substance: LORMETAZEPAM
     Dosage: 60 ML, TOTAL
     Route: 048
     Dates: start: 20210101, end: 20210101
  2. TORA?DOL [Suspect]
     Active Substance: KETOROLAC TROMETHAMINE
     Dosage: 5 ML, TOTAL
     Route: 048
     Dates: start: 20210101, end: 20210101
  3. SONIREM [Suspect]
     Active Substance: ZOLPIDEM TARTRATE
     Dosage: 30 ML, TOTAL
     Route: 048
     Dates: start: 20210101, end: 20210101
  4. XANAX [Suspect]
     Active Substance: ALPRAZOLAM
     Dosage: 40 ML, TOTAL
     Route: 048
     Dates: start: 20210101, end: 20210101

REACTIONS (5)
  - Sopor [Recovering/Resolving]
  - Confusional state [Recovering/Resolving]
  - Somnolence [Recovering/Resolving]
  - Intentional overdose [Recovering/Resolving]
  - Suicide attempt [Recovering/Resolving]

NARRATIVE: CASE EVENT DATE: 20210101
